FAERS Safety Report 24647349 (Version 1)
Quarter: 2024Q4

REPORT INFORMATION
  Report Type: Spontaneous
  Country: BR (occurrence: BR)
  Receive Date: 20241121
  Receipt Date: 20241121
  Transmission Date: 20250115
  Serious: Yes (Other)
  Sender: COSETTE PHARMACEUTICALS INC
  Company Number: BR-COSETTE-CP2024BR000354

PATIENT
  Age: 60 Year
  Sex: Female

DRUGS (9)
  1. BENICAR [Suspect]
     Active Substance: OLMESARTAN MEDOXOMIL
     Indication: Renovascular hypertension
     Route: 065
  2. CARVEDILOL [Suspect]
     Active Substance: CARVEDILOL
     Indication: Renovascular hypertension
     Route: 065
  3. CHLORTHALIDONE [Suspect]
     Active Substance: CHLORTHALIDONE
     Indication: Renovascular hypertension
     Route: 065
  4. LERCANIDIPINE [Suspect]
     Active Substance: LERCANIDIPINE
     Indication: Renovascular hypertension
     Route: 065
  5. SPIRONOLACTONE [Suspect]
     Active Substance: SPIRONOLACTONE
     Indication: Renovascular hypertension
     Route: 065
  6. HYDRALAZINE [Suspect]
     Active Substance: HYDRALAZINE HYDROCHLORIDE
     Indication: Renovascular hypertension
     Route: 065
  7. METHYLDOPA [Suspect]
     Active Substance: METHYLDOPA
     Indication: Renovascular hypertension
     Route: 065
  8. LOSARTAN [Concomitant]
     Active Substance: LOSARTAN
     Route: 065
  9. HYDROCHLOROTHIAZIDE [Concomitant]
     Active Substance: HYDROCHLOROTHIAZIDE
     Route: 065

REACTIONS (3)
  - Renal artery occlusion [Unknown]
  - Renovascular hypertension [Unknown]
  - Therapy partial responder [Unknown]
